FAERS Safety Report 9464323 (Version 2)
Quarter: 2013Q3

REPORT INFORMATION
  Report Type: Report from Study
  Country: US (occurrence: US)
  Receive Date: 20130819
  Receipt Date: 20130913
  Transmission Date: 20140515
  Serious: Yes (Other)
  Sender: FDA-Public Use
  Company Number: PHEH2013US017461

PATIENT
  Sex: Male

DRUGS (3)
  1. EXELON PATCH [Suspect]
     Indication: DEMENTIA ALZHEIMER^S TYPE
     Dosage: 9.5 MG, DAILY
     Route: 062
  2. EXELON PATCH [Suspect]
     Dosage: 13.3 MG, DAILY
     Route: 062
     Dates: start: 2011
  3. NAMENDA [Concomitant]
     Dosage: UNK UKN, UNK

REACTIONS (2)
  - Polycythaemia [Unknown]
  - Asthma [Unknown]
